FAERS Safety Report 22028267 (Version 1)
Quarter: 2023Q1

REPORT INFORMATION
  Report Type: Spontaneous
  Country: US (occurrence: None)
  Receive Date: 20230223
  Receipt Date: 20230223
  Transmission Date: 20230417
  Serious: Yes (Other)
  Sender: FDA-Public Use
  Company Number: US-ROCHE-3133640

PATIENT
  Sex: Male
  Weight: 42.6 kg

DRUGS (4)
  1. NUTROPIN AQ [Suspect]
     Active Substance: SOMATROPIN
     Indication: Growth hormone deficiency
     Route: 058
     Dates: start: 202107
  2. NUTROPIN AQ [Suspect]
     Active Substance: SOMATROPIN
     Route: 058
     Dates: start: 202202
  3. ANASTROZOLE [Concomitant]
     Active Substance: ANASTROZOLE
     Indication: Short stature
     Route: 048
     Dates: start: 202104
  4. ADZENYS [Concomitant]
     Indication: Attention deficit hyperactivity disorder

REACTIONS (2)
  - Injection site pain [Not Recovered/Not Resolved]
  - Discomfort [Unknown]
